FAERS Safety Report 9506344 (Version 2)
Quarter: 2014Q1

REPORT INFORMATION
  Report Type: Spontaneous
  Country: US (occurrence: None)
  Receive Date: 20130301
  Receipt Date: 20140304
  Transmission Date: 20141002
  Serious: Yes (Hospitalization)
  Sender: FDA-Public Use
  Company Number: RB-40282-2012

PATIENT
  Age: 22 Year
  Sex: Female

DRUGS (3)
  1. SUBOXONE [Suspect]
     Indication: DRUG DEPENDENCE
     Route: 060
     Dates: start: 2008
  2. XANAX [Concomitant]
  3. KEPPRA [Concomitant]

REACTIONS (9)
  - Nausea [None]
  - Wrong technique in drug usage process [None]
  - Hepatitis acute [None]
  - Abdominal discomfort [None]
  - Jaundice [None]
  - Hepatomegaly [None]
  - Splenomegaly [None]
  - Headache [None]
  - Muscle spasms [None]
